FAERS Safety Report 10881887 (Version 1)
Quarter: 2015Q1

REPORT INFORMATION
  Report Type: Spontaneous
  Country: US (occurrence: None)
  Receive Date: 20150227
  Receipt Date: 20150227
  Transmission Date: 20150721
  Serious: Yes (Death, Hospitalization)
  Sender: FDA-Public Use
  Company Number: None

PATIENT
  Age: 76 Year
  Sex: Male
  Weight: 92.3 kg

DRUGS (2)
  1. GEMCITABINE HYDROCHLORIDE. [Suspect]
     Active Substance: GEMCITABINE HYDROCHLORIDE
     Dates: end: 20141124
  2. CISPLATIN. [Suspect]
     Active Substance: CISPLATIN
     Dates: end: 20141117

REACTIONS (4)
  - Dyspnoea [None]
  - Unresponsive to stimuli [None]
  - Cardiac arrest [None]
  - Fatigue [None]

NARRATIVE: CASE EVENT DATE: 20141125
